FAERS Safety Report 7006555-5 (Version None)
Quarter: 2010Q3

REPORT INFORMATION
  Report Type: 
  Country: None (occurrence: None)
  Receive Date: 20100921
  Receipt Date: 20081001
  Transmission Date: 20110219
  Serious: No
  Sender: FDA-Public Use
  Company Number: US-WYE-H06256508

PATIENT
  Age: 11 Year
  Sex: Male

DRUGS (1)
  1. BENEFIX [Suspect]
     Indication: FACTOR IX DEFICIENCY
     Dosage: NOT PROVIDED
     Route: 042
     Dates: start: 20020101

REACTIONS (3)
  - INJECTION SITE PAIN [None]
  - INJECTION SITE RASH [None]
  - WRONG TECHNIQUE IN DRUG USAGE PROCESS [None]
